FAERS Safety Report 10758694 (Version 1)
Quarter: 2015Q1

REPORT INFORMATION
  Report Type: Spontaneous
  Country: US (occurrence: None)
  Receive Date: 20150123
  Receipt Date: 20150123
  Transmission Date: 20150721
  Serious: No
  Sender: FDA-Public Use
  Company Number: 2014TUS011024

PATIENT
  Age: 31 Year
  Sex: Female
  Weight: 63 kg

DRUGS (5)
  1. ALPRAZOLAM. [Concomitant]
     Active Substance: ALPRAZOLAM
  2. ESCITALOPRAM [Concomitant]
     Active Substance: ESCITALOPRAM OXALATE
  3. CYCLOBENZAPRINE [Concomitant]
     Active Substance: CYCLOBENZAPRINE
  4. ENTYVIO [Suspect]
     Active Substance: VEDOLIZUMAB
     Indication: CROHN^S DISEASE
     Dosage: 300 MG, FIRST DOSE, INTRAVENOUS
     Route: 042
     Dates: start: 20141031
  5. ZOFRAN/00955301/ (NDANSETRON) [Concomitant]

REACTIONS (4)
  - Influenza like illness [None]
  - Pyrexia [None]
  - Pain in extremity [None]
  - Infusion site pain [None]

NARRATIVE: CASE EVENT DATE: 20141101
